FAERS Safety Report 5757305-1 (Version None)
Quarter: 2008Q2

REPORT INFORMATION
  Report Type: 
  Country: None (occurrence: None)
  Receive Date: 20080603
  Receipt Date: 20080522
  Transmission Date: 20081010
  Serious: Yes (Hospitalization, Other)
  Sender: FDA-Public Use
  Company Number: CA-ROCHE-566674

PATIENT
  Sex: Male

DRUGS (3)
  1. XELODA [Suspect]
     Route: 048
     Dates: start: 20080212, end: 20080314
  2. OXALIPLATIN [Suspect]
     Route: 042
     Dates: start: 20080212, end: 20080514
  3. AVASTIN [Concomitant]
     Route: 042
     Dates: start: 20071024

REACTIONS (3)
  - BACK PAIN [None]
  - BLOOD URINE PRESENT [None]
  - RENAL FAILURE [None]
